FAERS Safety Report 9536646 (Version 1)
Quarter: 2013Q2

REPORT INFORMATION
  Report Type: Spontaneous
  Country: US (occurrence: None)
  Receive Date: 20130517
  Receipt Date: 20130517
  Transmission Date: 20140414
  Serious: No
  Sender: FDA-Public Use
  Company Number: 1000044513

PATIENT
  Age: 61 Year
  Sex: Female

DRUGS (3)
  1. VIIBRYD (VILAZODONE HYDROCHLORIDE) (10 MILLIGRAM, TABLET) [Suspect]
     Indication: DEPRESSION
     Route: 048
     Dates: start: 20130403, end: 20130409
  2. VIIBRYD (VILAZODONE HYDROCHLORIDE) (40 MILLIGRAM, TABLET) [Suspect]
     Indication: DEPRESSION
     Route: 048
     Dates: start: 20130417, end: 20130417
  3. XANAX [Concomitant]

REACTIONS (1)
  - Rash [None]
